FAERS Safety Report 4456282-3 (Version None)
Quarter: 2004Q3

REPORT INFORMATION
  Report Type: 
  Country: None (occurrence: None)
  Receive Date: 20040917
  Receipt Date: 20040831
  Transmission Date: 20050211
  Serious: Yes (Death, Hospitalization, Other)
  Sender: FDA-Public Use
  Company Number: USA040875131

PATIENT
  Age: 67 Year
  Sex: Male
  Weight: 73 kg

DRUGS (6)
  1. GEMZAR [Suspect]
     Indication: NON-SMALL CELL LUNG CANCER
     Dosage: 1100 MG/M2
     Dates: start: 20040514
  2. RADIATION THERAPY [Concomitant]
  3. CISPLATIN [Concomitant]
  4. ETOPOSIDE [Concomitant]
  5. DECADRON [Concomitant]
  6. BRONCHOSCOPY/PNEUMOCYSTIS [Concomitant]

REACTIONS (6)
  - LUNG INFILTRATION [None]
  - METASTASES TO BONE [None]
  - METASTASES TO CENTRAL NERVOUS SYSTEM [None]
  - PLATELET COUNT DECREASED [None]
  - PNEUMOCYSTIS CARINII INFECTION [None]
  - PNEUMONITIS [None]
